FAERS Safety Report 9448098 (Version 1)
Quarter: 2013Q3

REPORT INFORMATION
  Report Type: Spontaneous
  Country: US (occurrence: US)
  Receive Date: 20130808
  Receipt Date: 20130808
  Transmission Date: 20140515
  Serious: Yes (Other)
  Sender: FDA-Public Use
  Company Number: US-ASTRAZENECA-2013SE60520

PATIENT
  Age: 74 Year
  Sex: Female
  Weight: 79.4 kg

DRUGS (8)
  1. ATENOLOL [Suspect]
     Indication: BLOOD PRESSURE ABNORMAL
     Route: 048
     Dates: start: 1993
  2. NEXIUM [Suspect]
     Indication: GASTROOESOPHAGEAL REFLUX DISEASE
     Route: 048
     Dates: start: 2007
  3. NEXIUM [Suspect]
     Indication: GASTROOESOPHAGEAL REFLUX DISEASE
     Route: 048
     Dates: start: 20130601
  4. LOSARTIN [Concomitant]
     Indication: BLOOD PRESSURE ABNORMAL
     Route: 048
     Dates: start: 1988
  5. PROPANOLOL [Concomitant]
     Indication: BLOOD PRESSURE ABNORMAL
     Route: 048
     Dates: start: 1988
  6. TRAZADONE [Concomitant]
     Indication: SLEEP DISORDER
     Route: 048
     Dates: start: 2009
  7. VIBRID [Concomitant]
     Indication: DEPRESSION
     Route: 048
     Dates: start: 2010
  8. ZOLOFT [Concomitant]
     Indication: DEPRESSION
     Route: 048
     Dates: start: 2010

REACTIONS (7)
  - Concussion [Unknown]
  - Head injury [Unknown]
  - Fall [Unknown]
  - Headache [Unknown]
  - Amnesia [Unknown]
  - Balance disorder [Unknown]
  - Contusion [Not Recovered/Not Resolved]
